FAERS Safety Report 5728786 (Version 1)
Quarter: 2020Q3

REPORT INFORMATION
  Report Type: Spontaneous
  Country: FR (occurrence: None)
  Receive Date: 20050126
  Receipt Date: 20050126
  Transmission Date: 20201104
  Serious: Yes (Hospitalization)
  Sender: FDA-Public Use
  Company Number: 6012579

PATIENT
  Age: 78 Year
  Sex: Male

DRUGS (7)
  1. AVODART [Suspect]
     Active Substance: DUTASTERIDE
     Dosage: (DOSAGE FORMS 1 IN 1 D)
     Route: 048
     Dates: start: 20041115, end: 20050105
  2. OMEPRAZOLE. [Suspect]
     Active Substance: OMEPRAZOLE
     Dosage: 10 MG (10 MG 1 IN 1 D)
     Route: 048
     Dates: start: 20040615, end: 20050101
  3. LEVOTHYROXINE SODIUM. [Suspect]
     Active Substance: LEVOTHYROXINE SODIUM
     Dosage: 150 MCG (50 MCG, 3 IN 1 D)
     Route: 048
     Dates: start: 20010615
  4. CORDARONE [Suspect]
     Active Substance: AMIODARONE HYDROCHLORIDE
     Dosage: 5,6143 MG (200 MG 1 IN 5 WK)
     Route: 048
     Dates: start: 20040615
  5. ATARAX [Suspect]
     Active Substance: HYDROXYZINE HYDROCHLORIDE
     Dosage: 2 DOSAGE FORMS (1 DOSAGE FORMS 2 IN 1 D)
     Route: 048
     Dates: start: 20040612
  6. FLUINDIONE [Suspect]
     Active Substance: FLUINDIONE
     Dosage: 10 MG (10 MG 1 IN 1 D)
     Route: 048
     Dates: start: 20040615, end: 20041231
  7. FERROUS SULFATE. [Suspect]
     Active Substance: FERROUS SULFATE
     Dosage: 80 MG (80 MG 1 IN 1 D)
     Dates: start: 20040615

REACTIONS (8)
  - Acute kidney injury [None]
  - Urticaria [None]
  - Dialysis [None]
  - Hypersensitivity [None]
  - Rash pruritic [None]
  - Coronary artery bypass [None]
  - Rash maculo-papular [None]
  - C-reactive protein increased [None]

NARRATIVE: CASE EVENT DATE: 20041225
